FAERS Safety Report 5873999-4 (Version None)
Quarter: 2008Q3

REPORT INFORMATION
  Report Type: 
  Country: None (occurrence: None)
  Receive Date: 20080908
  Receipt Date: 20080825
  Transmission Date: 20090109
  Serious: Yes (Death)
  Sender: FDA-Public Use
  Company Number: US-ELI_LILLY_AND_COMPANY-US200808005216

PATIENT
  Sex: Female

DRUGS (11)
  1. ZYPREXA [Suspect]
     Dosage: 30 MG, DAILY (1/D)
  2. CLOZAPINE [Concomitant]
     Dosage: 12.5 MG, UNK
     Dates: start: 20050101
  3. CLOZAPINE [Concomitant]
     Dosage: 25 MG, UNK
     Dates: start: 20050101
  4. CLOZAPINE [Concomitant]
     Dosage: 50 MG, UNK
  5. CLOZAPINE [Concomitant]
     Dosage: 100 MG, UNK
  6. CLOZAPINE [Concomitant]
     Dosage: 400 MG, DAILY (1/D)
     Route: 048
     Dates: start: 20080501
  7. CLOZAPINE [Concomitant]
     Dosage: 800 MG, DAILY (1/D)
  8. CLOZAPINE [Concomitant]
     Dosage: 600 MG, DAILY (1/D)
  9. CLOZAPINE [Concomitant]
     Dosage: 400 MG, DAILY (1/D)
     Route: 048
  10. VALPROATE SODIUM [Concomitant]
     Dosage: 500 MG, 2/D
  11. LORAZEPAM [Concomitant]
     Dosage: 1 MG, EACH EVENING
     Route: 048

REACTIONS (2)
  - ARRHYTHMIA [None]
  - OVERDOSE [None]
